FAERS Safety Report 5027236-3 (Version None)
Quarter: 2006Q2

REPORT INFORMATION
  Report Type: 
  Country: None (occurrence: None)
  Receive Date: 20060501
  Receipt Date: 20060113
  Transmission Date: 20061013
  Serious: No
  Sender: FDA-Public Use
  Company Number: 2006PV007045

PATIENT
  Age: 44 Year
  Sex: Female
  Weight: 62.1428 kg

DRUGS (4)
  1. SYMLIN [Suspect]
     Indication: DIABETES MELLITUS INSULIN-DEPENDENT
     Dosage: 27 MCG; TID; SC; SEE IMAGE
     Route: 058
     Dates: start: 20060101
  2. SYMLIN [Suspect]
     Indication: DIABETES MELLITUS INSULIN-DEPENDENT
     Dosage: 27 MCG; TID; SC; SEE IMAGE
     Route: 058
     Dates: start: 20060102
  3. LANTUS [Concomitant]
  4. NOVOLOG [Concomitant]

REACTIONS (3)
  - BLOOD GLUCOSE INCREASED [None]
  - FOOD CRAVING [None]
  - WEIGHT INCREASED [None]
